FAERS Safety Report 7687581-X (Version None)
Quarter: 2011Q3

REPORT INFORMATION
  Report Type: 
  Country: None (occurrence: None)
  Receive Date: 20110817
  Receipt Date: 20091107
  Transmission Date: 20111222
  Serious: Yes (Other)
  Sender: FDA-Public Use
  Company Number: US-BAYER-200938950NA

PATIENT
  Sex: Female
  Weight: 85 kg

DRUGS (7)
  1. PRAVACHOL [Concomitant]
     Dosage: 20 MG, QD
  2. ZEBETA [Concomitant]
     Dosage: 5 MG, QD
  3. HUMULIN 70/30 [Concomitant]
     Dosage: 18-20 UNITS EVERY EVENING
  4. TRASYLOL [Suspect]
     Indication: PRODUCT USED FOR UNKNOWN INDICATION
     Route: 042
     Dates: start: 20050504
  5. ACETYLSALICYLIC ACID SRT [Concomitant]
     Dosage: 325 MG, QD
  6. HUMULIN 70/30 [Concomitant]
     Dosage: 60 UNITS EVERY MORNING
  7. PLAVIX [Concomitant]
     Dosage: 75 MG, QD

REACTIONS (10)
  - RENAL IMPAIRMENT [None]
  - STRESS [None]
  - PAIN [None]
  - INJURY [None]
  - ANXIETY [None]
  - UNEVALUABLE EVENT [None]
  - RENAL INJURY [None]
  - EMOTIONAL DISTRESS [None]
  - RENAL FAILURE [None]
  - FEAR [None]
